FAERS Safety Report 21232705 (Version 1)
Quarter: 2022Q3

REPORT INFORMATION
  Report Type: Spontaneous
  Country: FR (occurrence: FR)
  Receive Date: 20220819
  Receipt Date: 20220819
  Transmission Date: 20221026
  Serious: Yes (Hospitalization)
  Sender: FDA-Public Use
  Company Number: None

PATIENT
  Age: 31 Year
  Sex: Male

DRUGS (18)
  1. XANAX [Suspect]
     Active Substance: ALPRAZOLAM
     Dosage: BETWEEN 1.5 AND 5MG/DAY
     Route: 048
  2. XANAX [Suspect]
     Active Substance: ALPRAZOLAM
     Dosage: UNK
     Route: 042
  3. OXAZEPAM [Suspect]
     Active Substance: OXAZEPAM
     Dosage: UNK
     Route: 042
  4. OXAZEPAM [Suspect]
     Active Substance: OXAZEPAM
     Dosage: 250 AND 500MG/DAY
     Route: 048
  5. KETAMINE [Suspect]
     Active Substance: KETAMINE
     Route: 065
  6. SUBUTEX [Suspect]
     Active Substance: BUPRENORPHINE HYDROCHLORIDE
     Route: 042
  7. HERBALS [Suspect]
     Active Substance: HERBALS
     Route: 065
  8. CANNABIS SATIVA SUBSP. INDICA TOP [Suspect]
     Active Substance: CANNABIS SATIVA SUBSP. INDICA TOP
     Route: 065
  9. COCAINE [Suspect]
     Active Substance: COCAINE
     Route: 055
     Dates: start: 2019
  10. COCAINE [Suspect]
     Active Substance: COCAINE
     Dosage: BETWEEN 1 AND 8G/DAY
     Route: 042
     Dates: start: 2019
  11. TOBACCO LEAF [Suspect]
     Active Substance: TOBACCO LEAF
     Dosage: 30 ROLLED CIGARETTES PER DAY
     Route: 055
     Dates: start: 1999
  12. AMPHETAMINE [Suspect]
     Active Substance: AMPHETAMINE
     Route: 065
  13. LYSERGIDE [Suspect]
     Active Substance: LYSERGIDE
     Route: 065
  14. HEROIN [Suspect]
     Active Substance: DIAMORPHINE
     Dosage: 2G/WEEK
     Route: 042
     Dates: start: 2011
  15. HEROIN [Suspect]
     Active Substance: DIAMORPHINE
     Dosage: UNK
     Route: 045
     Dates: start: 2011
  16. HEROIN [Suspect]
     Active Substance: DIAMORPHINE
     Dosage: UNK
     Route: 055
     Dates: start: 2011
  17. ALCOHOL [Suspect]
     Active Substance: ALCOHOL
     Dosage: UP TO 32 US/DAY
     Route: 048
     Dates: start: 2001
  18. MIDOMAFETAMINE [Suspect]
     Active Substance: MIDOMAFETAMINE

REACTIONS (5)
  - Off label use [Not Recovered/Not Resolved]
  - Toxicity to various agents [Recovered/Resolved]
  - Confusional state [Recovered/Resolved]
  - Drug abuse [Not Recovered/Not Resolved]
  - Agitation [Recovered/Resolved]

NARRATIVE: CASE EVENT DATE: 20210101
